FAERS Safety Report 11456490 (Version 1)
Quarter: 2015Q3

REPORT INFORMATION
  Report Type: Spontaneous
  Country: US (occurrence: US)
  Receive Date: 20150903
  Receipt Date: 20150903
  Transmission Date: 20151125
  Serious: Yes (Other)
  Sender: FDA-Public Use
  Company Number: US-TAKEDA-2014TUS002074

PATIENT

DRUGS (11)
  1. GLUCOPHAGE [Concomitant]
     Active Substance: METFORMIN HYDROCHLORIDE
     Dosage: 2000 MG, UNK
     Dates: start: 201212, end: 201303
  2. LANTUS [Concomitant]
     Active Substance: INSULIN GLARGINE
     Dosage: 100 IU, UNK
     Dates: start: 200801, end: 201109
  3. JANUVIA [Concomitant]
     Active Substance: SITAGLIPTIN PHOSPHATE
     Dosage: 100 MG, UNK
     Dates: start: 200707, end: 200801
  4. VICTOZA [Concomitant]
     Active Substance: LIRAGLUTIDE
     Indication: DIABETES MELLITUS
     Dosage: 18 MCG/3ML, UNK
     Dates: start: 201011, end: 201201
  5. ACTOS [Suspect]
     Active Substance: PIOGLITAZONE HYDROCHLORIDE
     Indication: TYPE 2 DIABETES MELLITUS
     Dosage: 15MG, 30MG, 45MG, UNK
     Route: 048
     Dates: start: 200706, end: 201303
  6. METFORMIN [Concomitant]
     Active Substance: METFORMIN HYDROCHLORIDE
     Dosage: 2000 MG, UNK
     Dates: start: 200706
  7. AVANDIA [Concomitant]
     Active Substance: ROSIGLITAZONE MALEATE
     Dosage: 1 OR 2 PRESCRIPTION IN MONTHS BEFORE STARTING OF ACTOS
  8. BYETTA [Concomitant]
     Active Substance: EXENATIDE
     Dosage: 5 MCG/0.02ML, UNK
     Dates: start: 200804, end: 200811
  9. NOVOLOG [Concomitant]
     Active Substance: INSULIN ASPART
     Indication: DIABETES MELLITUS
     Dosage: 100 IU, UNK
     Dates: start: 201303
  10. AMARYL [Concomitant]
     Active Substance: GLIMEPIRIDE
     Dosage: 8 MG, UNK
     Dates: start: 200707, end: 201204
  11. LEVEMIR [Concomitant]
     Active Substance: INSULIN DETEMIR
     Dosage: 60 IU, UNK
     Dates: start: 201204

REACTIONS (1)
  - Bladder cancer [Unknown]

NARRATIVE: CASE EVENT DATE: 20121218
